FAERS Safety Report 9580028 (Version 1)
Quarter: 2013Q3

REPORT INFORMATION
  Report Type: Spontaneous
  Country: US (occurrence: None)
  Receive Date: 20130930
  Receipt Date: 20130930
  Transmission Date: 20140515
  Serious: Yes (Hospitalization)
  Sender: FDA-Public Use
  Company Number: None

PATIENT
  Age: 47 Year
  Sex: Male
  Weight: 115.67 kg

DRUGS (1)
  1. GABAPENTIN [Suspect]
     Indication: ABNORMAL BEHAVIOUR
     Dates: start: 20131005, end: 20131010

REACTIONS (6)
  - Eye pain [None]
  - Visual acuity reduced [None]
  - Muscle twitching [None]
  - Extraocular muscle disorder [None]
  - Optic nerve disorder [None]
  - Therapy cessation [None]
